FAERS Safety Report 23987458 (Version 2)
Quarter: 2025Q3

REPORT INFORMATION
  Report Type: Spontaneous
  Country: US (occurrence: US)
  Receive Date: 20240618
  Receipt Date: 20250807
  Transmission Date: 20251020
  Serious: Yes (Hospitalization)
  Sender: NOVARTIS
  Company Number: US-002147023-NVSC2024US124486

PATIENT

DRUGS (1)
  1. TASIGNA [Suspect]
     Active Substance: NILOTINIB
     Indication: Product used for unknown indication
     Dosage: 150 MG, BID (EVERY 12 HOURS)
     Route: 065

REACTIONS (5)
  - Splenomegaly [Unknown]
  - Abdominal pain upper [Unknown]
  - Illness [Unknown]
  - Influenza [Unknown]
  - Fatigue [Unknown]
